FAERS Safety Report 17640838 (Version 5)
Quarter: 2020Q3

REPORT INFORMATION
  Report Type: Report from Study
  Country: US (occurrence: US)
  Receive Date: 20200407
  Receipt Date: 20200703
  Transmission Date: 20201102
  Serious: No
  Sender: FDA-Public Use
  Company Number: NVSC2020US091303

PATIENT
  Sex: Male

DRUGS (1)
  1. COSENTYX [Suspect]
     Active Substance: SECUKINUMAB
     Indication: PRODUCT USED FOR UNKNOWN INDICATION
     Dosage: 300 MG, QMO
     Route: 058
     Dates: start: 20191215

REACTIONS (6)
  - Pyrexia [Unknown]
  - Drug ineffective [Unknown]
  - Psoriasis [Unknown]
  - Skin weeping [Unknown]
  - Skin exfoliation [Unknown]
  - Injection site extravasation [Unknown]
